FAERS Safety Report 4293951-2 (Version None)
Quarter: 2004Q1

REPORT INFORMATION
  Report Type: 
  Country: None (occurrence: None)
  Receive Date: 20040209
  Receipt Date: 20040129
  Transmission Date: 20041129
  Serious: Yes (Hospitalization)
  Sender: FDA-Public Use
  Company Number: HQ5086606NOV2002

PATIENT
  Age: 60 Year
  Sex: Male

DRUGS (7)
  1. PANTOZOL          (PANTOPRAZOLE) [Suspect]
     Dates: start: 20020906, end: 20021018
  2. SANDIMMUNE [Suspect]
     Indication: HEART TRANSPLANT
     Dosage: 150 MG 2 X PER 1 DAY, ORAL
     Route: 048
     Dates: end: 20021020
  3. SANDIMMUNE [Suspect]
     Dosage: 350 MG 2 X PER 1 DAY, ORAL
     Route: 048
     Dates: start: 20021021
  4. ZOLPIDEM TARTRATE [Concomitant]
  5. CELLCEPT [Concomitant]
  6. CORTICOSTEROIDS (CORTICOSTEROIDS) [Concomitant]
  7. MAGNESIUM (MAGNESIUM) [Concomitant]

REACTIONS (4)
  - DRUG INTERACTION [None]
  - IMMUNOSUPPRESSANT DRUG LEVEL DECREASED [None]
  - STEATORRHOEA [None]
  - WEIGHT DECREASED [None]
